FAERS Safety Report 20763737 (Version 1)
Quarter: 2022Q2

REPORT INFORMATION
  Report Type: Spontaneous
  Country: CA (occurrence: CA)
  Receive Date: 20220428
  Receipt Date: 20220428
  Transmission Date: 20220721
  Serious: Yes (Other)
  Sender: FDA-Public Use
  Company Number: CA-TEVA-2022-CA-2030926

PATIENT
  Age: 40 Year
  Sex: Female

DRUGS (25)
  1. METHOTREXATE [Suspect]
     Active Substance: METHOTREXATE
     Indication: Product used for unknown indication
     Route: 058
  2. METHOTREXATE [Suspect]
     Active Substance: METHOTREXATE
     Route: 058
  3. METHOTREXATE [Suspect]
     Active Substance: METHOTREXATE
     Route: 058
  4. AZATHIOPRINE [Concomitant]
     Active Substance: AZATHIOPRINE
     Dosage: 250 MILLIGRAM DAILY;
  5. AZATHIOPRINE [Concomitant]
     Active Substance: AZATHIOPRINE
     Dosage: 200 MILLIGRAM DAILY;
     Route: 048
  6. AZATHIOPRINE [Concomitant]
     Active Substance: AZATHIOPRINE
     Dosage: 300 MILLIGRAM DAILY;
  7. AZATHIOPRINE [Concomitant]
     Active Substance: AZATHIOPRINE
  8. HUMIRA [Concomitant]
     Active Substance: ADALIMUMAB
     Route: 058
  9. HUMIRA [Concomitant]
     Active Substance: ADALIMUMAB
     Route: 058
  10. HYDROXYCHLOROQUINE [Concomitant]
     Active Substance: HYDROXYCHLOROQUINE
     Route: 065
  11. HYDROXYCHLOROQUINE [Concomitant]
     Active Substance: HYDROXYCHLOROQUINE
     Dosage: 400 MILLIGRAM DAILY;
  12. INFLIXIMAB [Concomitant]
     Active Substance: INFLIXIMAB
  13. MEDROL [Concomitant]
     Active Substance: METHYLPREDNISOLONE
  14. MEDROL [Concomitant]
     Active Substance: METHYLPREDNISOLONE
     Dosage: 2 MILLIGRAM DAILY;
  15. MEDROL [Concomitant]
     Active Substance: METHYLPREDNISOLONE
  16. MEDROL [Concomitant]
     Active Substance: METHYLPREDNISOLONE
     Dosage: 6 MILLIGRAM DAILY;
  17. MEDROL [Concomitant]
     Active Substance: METHYLPREDNISOLONE
  18. MEDROL [Concomitant]
     Active Substance: METHYLPREDNISOLONE
  19. MEDROL [Concomitant]
     Active Substance: METHYLPREDNISOLONE
  20. MEDROL [Concomitant]
     Active Substance: METHYLPREDNISOLONE
     Dosage: 4 MILLIGRAM DAILY;
  21. MEDROL [Concomitant]
     Active Substance: METHYLPREDNISOLONE
  22. MEDROL [Concomitant]
     Active Substance: METHYLPREDNISOLONE
  23. METHYLPREDNISOLONE SODIUM SUCCINATE [Concomitant]
     Active Substance: METHYLPREDNISOLONE SODIUM SUCCINATE
     Route: 042
  24. METHYLPREDNISOLONE SODIUM SUCCINATE [Concomitant]
     Active Substance: METHYLPREDNISOLONE SODIUM SUCCINATE
     Route: 042
  25. PREDNISONE [Concomitant]
     Active Substance: PREDNISONE

REACTIONS (28)
  - Arthralgia [Recovered/Resolved]
  - Audiogram abnormal [Recovered/Resolved]
  - Deafness [Recovered/Resolved]
  - Diarrhoea [Recovered/Resolved]
  - Diplopia [Recovered/Resolved]
  - Disease recurrence [Recovered/Resolved]
  - Ear discomfort [Recovered/Resolved]
  - Ear discomfort [Recovered/Resolved]
  - Fatigue [Recovered/Resolved]
  - Furuncle [Recovered/Resolved]
  - Haematuria [Recovered/Resolved]
  - Headache [Recovered/Resolved]
  - Headache [Recovered/Resolved]
  - Inflammatory pain [Recovered/Resolved]
  - Intraocular pressure increased [Recovered/Resolved]
  - Leukocytosis [Recovered/Resolved]
  - Monoparesis [Recovered/Resolved]
  - Mouth ulceration [Recovered/Resolved]
  - Nausea [Recovered/Resolved]
  - Optic neuritis [Recovered/Resolved]
  - Pain in extremity [Recovered/Resolved]
  - Pathergy reaction [Recovered/Resolved]
  - Pyrexia [Recovered/Resolved]
  - Thrombocytosis [Recovered/Resolved]
  - Vasculitis [Recovered/Resolved]
  - Vomiting [Recovered/Resolved]
  - Off label use [Recovered/Resolved]
  - Drug ineffective [Recovered/Resolved]
